FAERS Safety Report 18140342 (Version 2)
Quarter: 2020Q3

REPORT INFORMATION
  Report Type: Report from Study
  Country: CA (occurrence: CA)
  Receive Date: 20200812
  Receipt Date: 20200821
  Transmission Date: 20201103
  Serious: Yes (Hospitalization)
  Sender: FDA-Public Use
  Company Number: CA-TAKEDA-2020TUS033853

PATIENT
  Age: 22 Year
  Sex: Male

DRUGS (4)
  1. PENTASA [Concomitant]
     Active Substance: MESALAMINE
     Dosage: 500 MILLIGRAM, BID
  2. VEDOLIZUMAB [Suspect]
     Active Substance: VEDOLIZUMAB
     Indication: COLITIS ULCERATIVE
     Dosage: 300 MILLIGRAM
     Route: 042
     Dates: start: 20181229
  3. VEDOLIZUMAB [Suspect]
     Active Substance: VEDOLIZUMAB
     Dosage: 300 MILLIGRAM, Q4WEEKS
     Route: 042
     Dates: start: 20190515
  4. VEDOLIZUMAB [Suspect]
     Active Substance: VEDOLIZUMAB
     Dosage: 300 MILLIGRAM, Q4WEEKS
     Route: 042
     Dates: end: 20200711

REACTIONS (3)
  - Off label use [Unknown]
  - Clostridium difficile infection [Unknown]
  - Malaise [Unknown]

NARRATIVE: CASE EVENT DATE: 20190515
